FAERS Safety Report 8034073 (Version 4)
Quarter: 2014Q1

REPORT INFORMATION
  Report Type: Report from Study
  Country: NO (occurrence: NO)
  Receive Date: 20110713
  Receipt Date: 20140128
  Transmission Date: 20141002
  Serious: Yes (Hospitalization)
  Sender: FDA-Public Use
  Company Number: PHHO2011NO10661

PATIENT
  Sex: 0

DRUGS (3)
  1. NEORAL [Suspect]
     Indication: RENAL TRANSPLANT
     Dosage: 400 MG, UNK
     Route: 048
     Dates: start: 20110207
  2. PREDNISOLON [Suspect]
     Indication: RENAL TRANSPLANT
     Dosage: 15 MG, UNK
     Dates: start: 20110324, end: 20110404
  3. MYFORTIC [Concomitant]
     Indication: RENAL TRANSPLANT
     Dosage: 1440 MG, UNK
     Dates: start: 20110207, end: 20110404

REACTIONS (1)
  - Lymphocele [Recovered/Resolved]
